FAERS Safety Report 6801708-0 (Version None)
Quarter: 2010Q2

REPORT INFORMATION
  Report Type: 
  Country: None (occurrence: None)
  Receive Date: 20100629
  Receipt Date: 20100622
  Transmission Date: 20101027
  Serious: Yes (Hospitalization)
  Sender: FDA-Public Use
  Company Number: DE-BRISTOL-MYERS SQUIBB COMPANY-15168610

PATIENT
  Age: 57 Year
  Sex: Male
  Weight: 59 kg

DRUGS (4)
  1. CETUXIMAB [Suspect]
     Indication: HEAD AND NECK CANCER
     Dosage: REC INF: 15JUN2010; NO OF INF: 7
     Route: 042
     Dates: start: 20100504
  2. CISPLATIN [Suspect]
     Indication: HEAD AND NECK CANCER
     Dosage: REC INF: 16JUN2010; NO OF INF: 3
     Route: 042
     Dates: start: 20100504
  3. CILENGITIDE [Suspect]
     Indication: HEAD AND NECK CANCER
     Dosage: REC INF: 18JUN2010(500 MG); NO OF INF: 16
     Route: 042
     Dates: start: 20100504
  4. FLUOROURACIL [Suspect]
     Indication: HEAD AND NECK CANCER
     Dosage: REC INF: 20JUN2010, CONTINUOUS INF FROM DAY 1 TO DAY 4 OF CYCLE. NO OF INF: 3
     Route: 042
     Dates: start: 20100504

REACTIONS (6)
  - BLOOD SODIUM DECREASED [None]
  - DYSPNOEA [None]
  - HAEMATOCRIT DECREASED [None]
  - HAEMOGLOBIN DECREASED [None]
  - PLATELET COUNT INCREASED [None]
  - WHITE BLOOD CELL COUNT DECREASED [None]
